FAERS Safety Report 6930919-9 (Version None)
Quarter: 2010Q3

REPORT INFORMATION
  Report Type: 
  Country: None (occurrence: None)
  Receive Date: 20100813
  Receipt Date: 20100729
  Transmission Date: 20110219
  Serious: Yes (Hospitalization)
  Sender: FDA-Public Use
  Company Number: 2010AP001580

PATIENT
  Age: 72 Year
  Sex: Female

DRUGS (12)
  1. RAMIPRIL [Suspect]
     Indication: GLOMERULAR FILTRATION RATE DECREASED
     Dosage: 2.5 MG; PO
     Route: 048
     Dates: start: 20100315, end: 20100325
  2. RAMIPRIL [Suspect]
     Indication: HYPERTENSION
     Dosage: 2.5 MG; PO
     Route: 048
     Dates: start: 20100315, end: 20100325
  3. CODEINE PHOSPHATE (CODEINE PHOSPHATE) [Concomitant]
  4. ACETAMINOPHEN [Concomitant]
  5. INSULIN GLARGINE (INSULIN GLARGINE) [Concomitant]
  6. LANSOPRAZOLE [Concomitant]
  7. LEVOTHYROXINE SODIUM [Concomitant]
  8. MIRTAZAPINE [Concomitant]
  9. INSULIN ASPART (INSULIN ASPART) [Concomitant]
  10. SENNA (SENNA) [Concomitant]
  11. SIMVASTATIN [Concomitant]
  12. ACE INHIBITOR NOS (ACE INHIBITOR NOS) [Concomitant]

REACTIONS (4)
  - ALANINE AMINOTRANSFERASE INCREASED [None]
  - BLOOD ALKALINE PHOSPHATASE INCREASED [None]
  - GAMMA-GLUTAMYLTRANSFERASE INCREASED [None]
  - GLOMERULAR FILTRATION RATE DECREASED [None]
